FAERS Safety Report 13132017 (Version 11)
Quarter: 2017Q3

REPORT INFORMATION
  Report Type: Spontaneous
  Country: US (occurrence: US)
  Receive Date: 20170119
  Receipt Date: 20170816
  Transmission Date: 20171127
  Serious: No
  Sender: FDA-Public Use
  Company Number: US-ACTELION-A-US2017-148614

PATIENT
  Age: 77 Year
  Sex: Female
  Weight: 74.83 kg

DRUGS (3)
  1. OPSUMIT [Suspect]
     Active Substance: MACITENTAN
     Indication: PULMONARY ARTERIAL HYPERTENSION
     Dosage: 10 MG, QD
     Route: 048
     Dates: start: 20161121
  2. ELIQUIS [Concomitant]
     Active Substance: APIXABAN
  3. ADEMPAS [Concomitant]
     Active Substance: RIOCIGUAT
     Dosage: 1.5 MG, UNK

REACTIONS (18)
  - Vomiting [Unknown]
  - Wheezing [Unknown]
  - Arthralgia [Recovering/Resolving]
  - Pyrexia [Unknown]
  - Headache [Unknown]
  - Pain in extremity [Recovering/Resolving]
  - Productive cough [Unknown]
  - Weight decreased [Unknown]
  - Cough [Unknown]
  - Chest discomfort [Recovered/Resolved]
  - Hypoaesthesia [Recovering/Resolving]
  - Rhonchi [Unknown]
  - Decreased appetite [Unknown]
  - Peripheral swelling [Unknown]
  - Constipation [Unknown]
  - Dyspnoea [Unknown]
  - Oedema [Unknown]
  - Nausea [Unknown]

NARRATIVE: CASE EVENT DATE: 201701
